FAERS Safety Report 5243060-0 (Version None)
Quarter: 2007Q1

REPORT INFORMATION
  Report Type: 
  Country: None (occurrence: None)
  Receive Date: 20070215
  Receipt Date: 20070202
  Transmission Date: 20070707
  Serious: Yes (Hospitalization)
  Sender: FDA-Public Use
  Company Number: 20070035

PATIENT
  Age: 79 Year
  Sex: Female
  Weight: 58.0604 kg

DRUGS (2)
  1. VENOFER [Suspect]
     Indication: BLOOD IRON DECREASED
     Dosage: SEE IMAGE
     Dates: start: 20070122, end: 20070122
  2. VENOFER [Suspect]
     Indication: RENAL FAILURE CHRONIC
     Dosage: SEE IMAGE
     Dates: start: 20070122, end: 20070122

REACTIONS (9)
  - BRADYCARDIA [None]
  - DIARRHOEA [None]
  - DIZZINESS [None]
  - HYPERHIDROSIS [None]
  - HYPOTENSION [None]
  - NAUSEA [None]
  - PALLOR [None]
  - PNEUMONIA ASPIRATION [None]
  - VOMITING [None]
